FAERS Safety Report 16067385 (Version 1)
Quarter: 2019Q2

REPORT INFORMATION
  Report Type: Spontaneous
  Country: US (occurrence: US)
  Receive Date: 20190313
  Receipt Date: 20190313
  Transmission Date: 20190711
  Serious: No
  Sender: FDA-Public Use
  Company Number: None

PATIENT
  Age: 46 Year
  Sex: Female
  Weight: 87.75 kg

DRUGS (7)
  1. AZITHROMYCIN ANHYDROUS. [Concomitant]
     Active Substance: AZITHROMYCIN ANHYDROUS
  2. CALCIUM [Concomitant]
     Active Substance: CALCIUM
  3. QBREXZA [Suspect]
     Active Substance: GLYCOPYRRONIUM TOSYLATE
     Indication: HYPERHIDROSIS
     Dosage: ?          QUANTITY:1 WIPE;?
     Route: 061
     Dates: start: 20190312, end: 20190312
  4. ZANTAC [Concomitant]
     Active Substance: RANITIDINE HYDROCHLORIDE
  5. RESTASIS [Concomitant]
     Active Substance: CYCLOSPORINE
  6. VITAMINS [Concomitant]
     Active Substance: VITAMINS
  7. PROTONIX [Concomitant]
     Active Substance: PANTOPRAZOLE SODIUM

REACTIONS (8)
  - Dry mouth [None]
  - Dry throat [None]
  - Headache [None]
  - Bladder discomfort [None]
  - Vision blurred [None]
  - Eye swelling [None]
  - Dysuria [None]
  - Abdominal pain upper [None]

NARRATIVE: CASE EVENT DATE: 20190312
